FAERS Safety Report 8265079-8 (Version None)
Quarter: 2012Q2

REPORT INFORMATION
  Report Type: 
  Country: None (occurrence: None)
  Receive Date: 20120403
  Receipt Date: 20120323
  Transmission Date: 20120825
  Serious: Yes (Other)
  Sender: FDA-Public Use
  Company Number: ES-1191015

PATIENT
  Age: 74 Year
  Sex: Female

DRUGS (14)
  1. BUPIVACAINA [Concomitant]
  2. OFTALAR [Concomitant]
  3. TOBRADEX [Concomitant]
  4. CEFTAZIDIMA [Concomitant]
  5. VISCOAT [Concomitant]
  6. BSS [Concomitant]
  7. BETADINE [Concomitant]
  8. LIDOCAINA [Concomitant]
  9. MYDRIACYL [Concomitant]
  10. VIGAMOX [Suspect]
     Dosage: (0.2-0.3 ML OF DILUTION 3 CC VIGAMOX + 3 CC ACTOCORTINA INTRAOCULAR)
     Route: 031
     Dates: start: 20120222, end: 20120222
  11. VANCOMICINA [Concomitant]
  12. AMIKACINA [Concomitant]
  13. LIQUIFILM [Concomitant]
  14. ACTOCORTINA [Concomitant]

REACTIONS (6)
  - ANTERIOR CHAMBER FIBRIN [None]
  - CORNEAL OEDEMA [None]
  - HYPOPYON [None]
  - VITRITIS [None]
  - OFF LABEL USE [None]
  - ENDOPHTHALMITIS [None]
